FAERS Safety Report 25674613 (Version 1)
Quarter: 2025Q3

REPORT INFORMATION
  Report Type: Spontaneous
  Country: US (occurrence: US)
  Receive Date: 20250813
  Receipt Date: 20250813
  Transmission Date: 20251020
  Serious: Yes (Death, Other)
  Sender: RANBAXY
  Company Number: US-SUN PHARMACEUTICAL INDUSTRIES INC-2025R1-522004

PATIENT
  Age: 72 Year
  Sex: Female

DRUGS (1)
  1. NICARDIPINE [Suspect]
     Active Substance: NICARDIPINE
     Indication: Postoperative care
     Route: 041

REACTIONS (4)
  - Cardiac arrest [Fatal]
  - Pulseless electrical activity [Fatal]
  - Vascular pseudoaneurysm [Fatal]
  - Haematoma [Fatal]
